FAERS Safety Report 21506108 (Version 3)
Quarter: 2022Q4

REPORT INFORMATION
  Report Type: Spontaneous
  Country: US (occurrence: US)
  Receive Date: 20221026
  Receipt Date: 20221216
  Transmission Date: 20230112
  Serious: No
  Sender: FDA-Public Use
  Company Number: US-PHARMAESSENTIA CORPORATION-US-2022-PEC-000758

PATIENT

DRUGS (5)
  1. BESREMI [Suspect]
     Active Substance: ROPEGINTERFERON ALFA-2B-NJFT
     Indication: Polycythaemia vera
     Dosage: 100 MCG, Q2W
     Route: 058
     Dates: start: 20220809
  2. BESREMI [Suspect]
     Active Substance: ROPEGINTERFERON ALFA-2B-NJFT
     Dosage: 200 MCG
     Route: 058
  3. BESREMI [Suspect]
     Active Substance: ROPEGINTERFERON ALFA-2B-NJFT
     Dosage: 250 MCG, Q2W
     Route: 058
  4. OZEMPIC [Concomitant]
     Active Substance: SEMAGLUTIDE
     Indication: Product used for unknown indication
     Dosage: UNK UNK, QW
     Route: 065
  5. OZEMPIC [Concomitant]
     Active Substance: SEMAGLUTIDE
     Dosage: 0.5 UNKNOWN, QW
     Route: 065

REACTIONS (19)
  - Plicated tongue [Unknown]
  - Glossodynia [Unknown]
  - Constipation [Not Recovered/Not Resolved]
  - Tongue ulceration [Not Recovered/Not Resolved]
  - Hyperaesthesia teeth [Unknown]
  - Platelet count increased [Not Recovered/Not Resolved]
  - Muscular weakness [Unknown]
  - Mouth ulceration [Recovering/Resolving]
  - Therapeutic response delayed [Unknown]
  - Hot flush [Unknown]
  - Inappropriate schedule of product administration [Unknown]
  - Pain in extremity [Unknown]
  - Oedema peripheral [Unknown]
  - Blood glucose abnormal [Unknown]
  - Diarrhoea [Unknown]
  - Arthralgia [Unknown]
  - Muscle spasms [Unknown]
  - Peripheral swelling [Unknown]
  - Contusion [Unknown]

NARRATIVE: CASE EVENT DATE: 20220801
